FAERS Safety Report 8968319 (Version 2)
Quarter: 2013Q2

REPORT INFORMATION
  Report Type: Spontaneous
  Country: GB (occurrence: GB)
  Receive Date: 20121217
  Receipt Date: 20130405
  Transmission Date: 20140414
  Serious: Yes (Other)
  Sender: FDA-Public Use
  Company Number: GB-PFIZER INC-2005101048

PATIENT
  Age: 80 Year
  Sex: Female

DRUGS (5)
  1. IBUPROFEN [Suspect]
     Indication: ARTHRALGIA
     Dosage: 400 MG, 3X/DAY
     Route: 048
  2. LEVOBUNOLOL HYDROCHLORIDE [Concomitant]
     Indication: GLAUCOMA
     Dosage: UNSPECIFIED
     Route: 065
  3. LATANOPROST [Concomitant]
     Indication: GLAUCOMA
     Dosage: UNSPECIFIED
     Route: 048
  4. DORZOLAMIDE [Concomitant]
     Indication: GLAUCOMA
     Dosage: UNSPECIFIED
  5. METHOTREXATE [Concomitant]
     Indication: PSORIASIS
     Dosage: 10 MG, WEEKLY

REACTIONS (1)
  - Acute generalised exanthematous pustulosis [Recovered/Resolved]
